FAERS Safety Report 7279297-9 (Version None)
Quarter: 2011Q1

REPORT INFORMATION
  Report Type: 
  Country: None (occurrence: None)
  Receive Date: 20110207
  Receipt Date: 20110201
  Transmission Date: 20110831
  Serious: Yes (Hospitalization, Other)
  Sender: FDA-Public Use
  Company Number: US-ABBOTT-11P-163-0702534-00

PATIENT
  Age: 63 Year
  Sex: Female

DRUGS (11)
  1. PREDNISONE [Concomitant]
     Indication: RHEUMATOID ARTHRITIS
  2. NEURONTIN [Concomitant]
     Indication: NEUROPATHY PERIPHERAL
  3. AZOR [Concomitant]
     Indication: HYPERTENSION
     Dosage: 10/40MG
  4. OXYCONTIN [Concomitant]
     Indication: PAIN
     Dosage: 10/325MG AS REQUIRED
  5. CYCLOBENZAPRINE [Concomitant]
     Indication: MUSCLE RELAXANT THERAPY
  6. LIPITOR [Concomitant]
     Indication: BLOOD CHOLESTEROL INCREASED
  7. ATENOLOL [Concomitant]
     Indication: HYPERTENSION
  8. NEURONTIN [Concomitant]
     Indication: RHEUMATOID ARTHRITIS
  9. HUMIRA [Suspect]
     Dates: start: 20101001
  10. NEXIUM [Concomitant]
     Indication: GASTROOESOPHAGEAL REFLUX DISEASE
  11. HUMIRA [Suspect]
     Indication: RHEUMATOID ARTHRITIS
     Dates: start: 20080101, end: 20100101

REACTIONS (2)
  - MENISCUS LESION [None]
  - TUBERCULOSIS [None]
